FAERS Safety Report 16340673 (Version 1)
Quarter: 2019Q2

REPORT INFORMATION
  Report Type: Spontaneous
  Country: IT (occurrence: IT)
  Receive Date: 20190522
  Receipt Date: 20190522
  Transmission Date: 20190711
  Serious: Yes (Hospitalization)
  Sender: FDA-Public Use
  Company Number: IT-SUN PHARMACEUTICAL INDUSTRIES LTD-2019RR-208510

PATIENT
  Age: 32 Year
  Sex: Male

DRUGS (3)
  1. RAMIPRIL. [Suspect]
     Active Substance: RAMIPRIL
     Indication: DRUG ABUSE
     Dosage: IN TOTAL
     Route: 048
     Dates: start: 20190106, end: 20190106
  2. CARBAMAZEPINE. [Suspect]
     Active Substance: CARBAMAZEPINE
     Indication: DRUG ABUSE
     Dosage: IN TOTAL
     Route: 048
     Dates: start: 20190106, end: 20190106
  3. AMLODIPINE [Suspect]
     Active Substance: AMLODIPINE BESYLATE
     Indication: DRUG ABUSE
     Dosage: IN TOTAL
     Route: 048
     Dates: start: 20190106, end: 20190106

REACTIONS (6)
  - Wound [Recovering/Resolving]
  - Hypotension [Recovering/Resolving]
  - Conjunctival haemorrhage [Recovering/Resolving]
  - Intentional self-injury [Recovering/Resolving]
  - Sopor [Recovering/Resolving]
  - Head injury [Recovering/Resolving]

NARRATIVE: CASE EVENT DATE: 20190106
